FAERS Safety Report 5888212-1 (Version None)
Quarter: 2008Q3

REPORT INFORMATION
  Report Type: 
  Country: None (occurrence: None)
  Receive Date: 20080916
  Receipt Date: 20080916
  Transmission Date: 20090109
  Serious: Yes (Hospitalization)
  Sender: FDA-Public Use
  Company Number: None

PATIENT
  Sex: Male
  Weight: 92.5 kg

DRUGS (3)
  1. BEVACIZUMAB  GENENTECH [Suspect]
     Indication: MANTLE CELL LYMPHOMA
     Dosage: 1425 MG  IV
     Route: 042
     Dates: start: 20080911, end: 20080911
  2. RITUXAN [Suspect]
     Indication: MANTLE CELL LYMPHOMA
     Dosage: 791  50 - 100 ML/HR  IV
     Route: 042
     Dates: start: 20080913, end: 20080913
  3. AVASTIN [Concomitant]

REACTIONS (13)
  - ACIDOSIS [None]
  - CARDIAC ARREST [None]
  - CYTOKINE STORM [None]
  - ELECTROMECHANICAL DISSOCIATION [None]
  - INFUSION RELATED REACTION [None]
  - ISCHAEMIA [None]
  - LYMPHOCYTOSIS [None]
  - MYOCARDIAL ISCHAEMIA [None]
  - PNEUMONIA ASPIRATION [None]
  - PULMONARY OEDEMA [None]
  - RESPIRATORY DISTRESS [None]
  - RESPIRATORY FAILURE [None]
  - TUMOUR LYSIS SYNDROME [None]
